FAERS Safety Report 6230343-0 (Version None)
Quarter: 2009Q2

REPORT INFORMATION
  Report Type: 
  Country: None (occurrence: None)
  Receive Date: 20090611
  Receipt Date: 20090528
  Transmission Date: 20091009
  Serious: Yes (Hospitalization)
  Sender: FDA-Public Use
  Company Number: 2009SP001378

PATIENT
  Age: 66 Year
  Sex: Female
  Weight: 68.9 kg

DRUGS (5)
  1. OMNARIS [Suspect]
     Indication: COUGH
     Dosage: 200 UG; IX; NASAL
     Dates: start: 20090515, end: 20090515
  2. LEVOTHYROXINE SODIUM [Concomitant]
  3. PROTONIX /01263201/ [Concomitant]
  4. ZETIA [Concomitant]
  5. METOPROLOL [Concomitant]

REACTIONS (4)
  - CONDITION AGGRAVATED [None]
  - COUGH [None]
  - DRUG HYPERSENSITIVITY [None]
  - SINUSITIS [None]
